FAERS Safety Report 25879801 (Version 1)
Quarter: 2025Q4

REPORT INFORMATION
  Report Type: Spontaneous
  Country: US (occurrence: US)
  Receive Date: 20251003
  Receipt Date: 20251003
  Transmission Date: 20260119
  Serious: Yes (Other)
  Sender: Kenvue
  Company Number: US-KENVUE-20250912882

PATIENT
  Sex: Female

DRUGS (1)
  1. TYLENOL [Suspect]
     Active Substance: ACETAMINOPHEN
     Indication: Pain
     Dosage: LARGE DOSES FOR MANY YEARS
     Route: 065

REACTIONS (8)
  - Product use issue [Unknown]
  - Abortion spontaneous [Unknown]
  - Ovarian cancer [Unknown]
  - Uterine cancer [Unknown]
  - Cervix carcinoma [Unknown]
  - Exposure during pregnancy [Unknown]
  - Infertility female [Unknown]
  - Endometriosis [Unknown]
